FAERS Safety Report 6396741-X (Version None)
Quarter: 2009Q4

REPORT INFORMATION
  Report Type: 
  Country: None (occurrence: None)
  Receive Date: 20091012
  Receipt Date: 20090609
  Transmission Date: 20100525
  Serious: No
  Sender: FDA-Public Use
  Company Number: US-ASTRAZENECA-2009UW09529

PATIENT
  Age: 71 Year
  Sex: Male
  Weight: 90.7 kg

DRUGS (2)
  1. SYMBICORT [Suspect]
     Indication: ASTHMA EXERCISE INDUCED
     Dosage: 160/4.5 TWO PUFFFS TWICE A DAY
     Route: 055
     Dates: start: 20090201
  2. PRAVASTATIN [Concomitant]

REACTIONS (1)
  - DYSPNOEA [None]
